FAERS Safety Report 15297661 (Version 1)
Quarter: 2018Q3

REPORT INFORMATION
  Report Type: Spontaneous
  Country: US (occurrence: US)
  Receive Date: 20180820
  Receipt Date: 20180820
  Transmission Date: 20181010
  Serious: Yes (Hospitalization)
  Sender: FDA-Public Use
  Company Number: US-PFIZER INC-2018329540

PATIENT
  Age: 63 Year
  Sex: Female

DRUGS (1)
  1. TESTOSTERONE CIPIONATE [Suspect]
     Active Substance: TESTOSTERONE
     Dosage: UNK

REACTIONS (7)
  - Blood pressure increased [Recovered/Resolved]
  - Palpitations [Recovered/Resolved]
  - Product use issue [Unknown]
  - Hypoaesthesia [Recovered/Resolved]
  - Neuropathy peripheral [Recovered/Resolved]
  - Heart rate increased [Recovered/Resolved]
  - Dizziness [Unknown]
